FAERS Safety Report 9681752 (Version 2)
Quarter: 2013Q4

REPORT INFORMATION
  Report Type: Report from Study
  Country: US (occurrence: US)
  Receive Date: 20131111
  Receipt Date: 20131114
  Transmission Date: 20140711
  Serious: Yes (Hospitalization)
  Sender: FDA-Public Use
  Company Number: US-GLAXOSMITHKLINE-B0941155A

PATIENT
  Age: 54 Year
  Sex: Male

DRUGS (4)
  1. REQUIP XL [Suspect]
     Indication: PARKINSON^S DISEASE
     Route: 048
     Dates: start: 20130904
  2. CENTRUM SILVER [Concomitant]
     Indication: ROUTINE HEALTH MAINTENANCE
     Dates: start: 200401
  3. STOOL SOFTENER [Concomitant]
     Indication: CONSTIPATION
     Dates: start: 200401
  4. BABY ASPIRIN [Concomitant]
     Indication: CARDIOVASCULAR EVENT PROPHYLAXIS

REACTIONS (1)
  - Cerebrovascular accident [Not Recovered/Not Resolved]
